FAERS Safety Report 21636098 (Version 1)
Quarter: 2022Q4

REPORT INFORMATION
  Report Type: Report from Study
  Country: US (occurrence: US)
  Receive Date: 20221123
  Receipt Date: 20221123
  Transmission Date: 20230113
  Serious: No
  Sender: FDA-Public Use
  Company Number: US-ABBVIE-22K-163-4433605-00

PATIENT
  Sex: Female

DRUGS (1)
  1. VENCLEXTA [Suspect]
     Active Substance: VENETOCLAX
     Indication: Plasma cell myeloma
     Dosage: 2 IN THE MORNING AN 2 IN THE EVENING.
     Route: 048
     Dates: start: 202101

REACTIONS (4)
  - Illness [Unknown]
  - Blood iron decreased [Unknown]
  - Pain in extremity [Unknown]
  - Headache [Unknown]
